FAERS Safety Report 12621960 (Version 1)
Quarter: 2016Q3

REPORT INFORMATION
  Report Type: Report from Study
  Country: US (occurrence: US)
  Receive Date: 20160804
  Receipt Date: 20160804
  Transmission Date: 20161109
  Serious: Yes (Other)
  Sender: FDA-Public Use
  Company Number: US-ROCHE-1807316

PATIENT
  Age: 26 Year
  Sex: Female
  Weight: 61.4 kg

DRUGS (3)
  1. VISMODEGIB [Suspect]
     Active Substance: VISMODEGIB
     Indication: MEDULLOBLASTOMA
     Dosage: ON DAYS 1-28. NEXT DOSE ON: 06/SEP/2012, 29/NOV/2012, 27/DEC/2012, 24/JAN/2013, 18/MAR/2013.
     Route: 048
     Dates: start: 20120809, end: 20130515
  2. VISMODEGIB [Suspect]
     Active Substance: VISMODEGIB
     Route: 048
     Dates: start: 20130321
  3. VISMODEGIB [Suspect]
     Active Substance: VISMODEGIB
     Route: 048
     Dates: start: 20130221

REACTIONS (1)
  - Lymphocyte count decreased [Unknown]
